FAERS Safety Report 6820893-8 (Version None)
Quarter: 2010Q3

REPORT INFORMATION
  Report Type: 
  Country: None (occurrence: None)
  Receive Date: 20100707
  Receipt Date: 20070710
  Transmission Date: 20110219
  Serious: No
  Sender: FDA-Public Use
  Company Number: US-PFIZER INC-2007057007

PATIENT
  Sex: Female
  Weight: 63.636 kg

DRUGS (3)
  1. SERTRALINE [Suspect]
     Indication: ANXIETY
     Dates: start: 20070709
  2. SERTRALINE [Suspect]
     Indication: DEPRESSION
  3. LORAZEPAM [Concomitant]

REACTIONS (4)
  - DISORIENTATION [None]
  - HYPOAESTHESIA [None]
  - INSOMNIA [None]
  - MIDDLE INSOMNIA [None]
